FAERS Safety Report 5035860-7 (Version None)
Quarter: 2006Q2

REPORT INFORMATION
  Report Type: 
  Country: None (occurrence: None)
  Receive Date: 20060526
  Receipt Date: 20060216
  Transmission Date: 20061013
  Serious: Yes (Hospitalization)
  Sender: FDA-Public Use
  Company Number: WAES 0602USA04710

PATIENT
  Age: 65 Year
  Sex: Female
  Weight: 75.7507 kg

DRUGS (11)
  1. VYTORIN [Suspect]
     Dosage: PO
     Route: 048
     Dates: start: 20051201
  2. BYETTA [Suspect]
     Indication: DIABETES MELLITUS NON-INSULIN-DEPENDENT
     Dates: start: 20051205, end: 20051228
  3. ACTOS [Concomitant]
  4. ALEVE (CAPLET) [Concomitant]
  5. AMARYL [Concomitant]
  6. GLUCOPHAGE [Concomitant]
  7. MOTRIN [Concomitant]
  8. NOVOLOG [Concomitant]
  9. CORTICOSTEROIDS [Concomitant]
  10. INSULIN [Concomitant]
  11. METFORMIN [Concomitant]

REACTIONS (1)
  - PANCREATITIS ACUTE [None]
